FAERS Safety Report 9708694 (Version 2)
Quarter: 2014Q1

REPORT INFORMATION
  Report Type: Spontaneous
  Country: US (occurrence: US)
  Receive Date: 20131125
  Receipt Date: 20140127
  Transmission Date: 20141002
  Serious: Yes (Death)
  Sender: FDA-Public Use
  Company Number: US-GLAXOSMITHKLINE-A1040651A

PATIENT
  Age: 59 Year
  Sex: Male
  Weight: 65.5 kg

DRUGS (1)
  1. VOTRIENT [Suspect]
     Indication: RENAL CANCER
     Dosage: 200MG UNKNOWN
     Route: 065

REACTIONS (7)
  - Death [Fatal]
  - Erythema [Unknown]
  - Blister [Unknown]
  - Chest discomfort [Unknown]
  - Muscle spasms [Unknown]
  - Skin fissures [Unknown]
  - Weight decreased [Unknown]
